FAERS Safety Report 12657503 (Version 2)
Quarter: 2016Q3

REPORT INFORMATION
  Report Type: Spontaneous
  Country: US (occurrence: US)
  Receive Date: 20160816
  Receipt Date: 20160927
  Transmission Date: 20161109
  Serious: Yes (Other)
  Sender: FDA-Public Use
  Company Number: US-AMGEN-USASP2016105557

PATIENT
  Sex: Female

DRUGS (3)
  1. ENBREL [Suspect]
     Active Substance: ETANERCEPT
     Indication: PRODUCT USED FOR UNKNOWN INDICATION
     Dosage: UNK
     Route: 065
  2. RITUXAN [Suspect]
     Active Substance: RITUXIMAB
     Indication: PRODUCT USED FOR UNKNOWN INDICATION
     Dosage: UNK
     Route: 065
  3. XELJANZ XR [Suspect]
     Active Substance: TOFACITINIB CITRATE
     Indication: PRODUCT USED FOR UNKNOWN INDICATION
     Dosage: 11 MG, UNK
     Route: 065

REACTIONS (13)
  - Gastrointestinal disorder [Unknown]
  - Renal failure [Unknown]
  - Systemic lupus erythematosus [Unknown]
  - Brain neoplasm malignant [Unknown]
  - Nausea [Unknown]
  - Pain [Unknown]
  - Headache [Unknown]
  - Pituitary tumour benign [Unknown]
  - Osteonecrosis [Unknown]
  - Malignant melanoma [Unknown]
  - Adverse reaction [Unknown]
  - Diarrhoea [Unknown]
  - Drug ineffective [Unknown]
